FAERS Safety Report 4667791-6 (Version None)
Quarter: 2005Q2

REPORT INFORMATION
  Report Type: 
  Country: None (occurrence: None)
  Receive Date: 20050520
  Receipt Date: 20050512
  Transmission Date: 20051028
  Serious: Yes (Life-Threatening, Hospitalization)
  Sender: FDA-Public Use
  Company Number: ES-GLAXOSMITHKLINE-B0381613A

PATIENT
  Age: 5 Day
  Sex: Female
  Weight: 4 kg

DRUGS (2)
  1. ZOVIRAX [Suspect]
     Indication: VARICELLA
     Dosage: 159MG PER DAY
     Route: 042
     Dates: start: 20040610, end: 20040615
  2. IMMUNE GLOBULIN INTRAVENOUS (HUMAN) [Suspect]
     Indication: VARICELLA
     Dosage: 35ML SINGLE DOSE
     Route: 065
     Dates: start: 20040610, end: 20040610

REACTIONS (5)
  - ENTEROCOLITIS [None]
  - ENTEROCOLITIS HAEMORRHAGIC [None]
  - NECROTISING COLITIS [None]
  - NEONATAL DISORDER [None]
  - RECTAL HAEMORRHAGE [None]
